FAERS Safety Report 14738754 (Version 1)
Quarter: 2018Q2

REPORT INFORMATION
  Report Type: Spontaneous
  Country: US (occurrence: US)
  Receive Date: 20180409
  Receipt Date: 20180409
  Transmission Date: 20180711
  Serious: No
  Sender: FDA-Public Use
  Company Number: US-BAUSCH-BL-2017-007488

PATIENT
  Age: 24 Year
  Sex: Female

DRUGS (1)
  1. AMMONUL [Suspect]
     Active Substance: SODIUM BENZOATE\SODIUM PHENYLACETATE
     Indication: ACCIDENTAL EXPOSURE TO PRODUCT
     Route: 065
     Dates: start: 20170316

REACTIONS (2)
  - Headache [Unknown]
  - Occupational exposure to product [Unknown]

NARRATIVE: CASE EVENT DATE: 20170316
